FAERS Safety Report 8781719 (Version 1)
Quarter: 2012Q4

REPORT INFORMATION
  Report Type: 
  Country: US (occurrence: US)
  Receive Date: 20120913
  Receipt Date: 20120913
  Transmission Date: 20130627
  Serious: Yes (Other)
  Sender: FDA-Public Use
  Company Number: US-ASTRAZENECA-2012SE69708

PATIENT
  Age: 58 Year
  Sex: Female
  Weight: 42.6 kg

DRUGS (9)
  1. NEXIUM [Suspect]
     Indication: GASTROOESOPHAGEAL REFLUX DISEASE
     Route: 048
  2. NEXIUM [Suspect]
     Indication: GASTROOESOPHAGEAL REFLUX DISEASE
     Route: 048
     Dates: start: 201208
  3. VALIUM [Concomitant]
     Indication: ANXIETY
     Route: 048
  4. METOPROLOL [Concomitant]
     Indication: BLOOD PRESSURE
     Route: 048
  5. FOLIC ACID [Concomitant]
     Indication: MEDICAL DIET
     Route: 048
  6. ASPIRIN [Concomitant]
     Indication: ANTICOAGULANT THERAPY
     Route: 048
  7. PROCHLORTHERAZINE [Concomitant]
     Indication: NAUSEA
     Route: 048
  8. MEGESTROL [Concomitant]
     Indication: APPETITE DISORDER
     Route: 048
  9. LOMOTIL [Concomitant]
     Indication: DIARRHOEA
     Dosage: UNKNOWN DOSE EVERY SIX HOURS

REACTIONS (3)
  - Cerebrovascular accident [Unknown]
  - Diarrhoea [Unknown]
  - Off label use [Unknown]
